FAERS Safety Report 13640060 (Version 1)
Quarter: 2017Q2

REPORT INFORMATION
  Report Type: Spontaneous
  Country: US (occurrence: US)
  Receive Date: 20170609
  Receipt Date: 20170609
  Transmission Date: 20170830
  Serious: No
  Sender: FDA-Public Use
  Company Number: US-ROCHE-1080253

PATIENT
  Sex: Female

DRUGS (2)
  1. KLONOPIN [Suspect]
     Active Substance: CLONAZEPAM
     Indication: PANIC DISORDER
     Route: 048
  2. XANAX [Concomitant]
     Active Substance: ALPRAZOLAM
     Indication: PANIC ATTACK
     Route: 048

REACTIONS (8)
  - Seizure [Recovered/Resolved]
  - Asthenia [Unknown]
  - Withdrawal syndrome [Unknown]
  - Dyskinesia [Not Recovered/Not Resolved]
  - Cardiac disorder [Unknown]
  - Muscle twitching [Not Recovered/Not Resolved]
  - Crying [Unknown]
  - Speech disorder [Not Recovered/Not Resolved]
